FAERS Safety Report 6901510-5 (Version None)
Quarter: 2010Q3

REPORT INFORMATION
  Report Type: 
  Country: None (occurrence: None)
  Receive Date: 20100803
  Receipt Date: 20080315
  Transmission Date: 20110219
  Serious: No
  Sender: FDA-Public Use
  Company Number: US-PFIZER INC-2008007284

PATIENT
  Sex: Female
  Weight: 62.14 kg

DRUGS (3)
  1. LYRICA [Suspect]
     Indication: FIBROMYALGIA
     Route: 048
     Dates: start: 20071101
  2. ACTIVELLA [Concomitant]
  3. ADVIL LIQUI-GELS [Concomitant]
     Dates: end: 20071101

REACTIONS (1)
  - CONSTIPATION [None]
